FAERS Safety Report 7519116-6 (Version None)
Quarter: 2011Q2

REPORT INFORMATION
  Report Type: 
  Country: None (occurrence: None)
  Receive Date: 20110602
  Receipt Date: 20110519
  Transmission Date: 20111010
  Serious: Yes (Hospitalization)
  Sender: FDA-Public Use
  Company Number: PHHY2010FR41665

PATIENT
  Sex: Female

DRUGS (1)
  1. IMATINIB MESYLATE [Suspect]
     Indication: CHRONIC MYELOID LEUKAEMIA
     Route: 048

REACTIONS (4)
  - ANAEMIA [None]
  - PANCYTOPENIA [None]
  - GENERAL PHYSICAL HEALTH DETERIORATION [None]
  - ASTHENIA [None]
